FAERS Safety Report 17257151 (Version 2)
Quarter: 2020Q1

REPORT INFORMATION
  Report Type: Spontaneous
  Country: US (occurrence: US)
  Receive Date: 20200110
  Receipt Date: 20200116
  Transmission Date: 20200409
  Serious: Yes (Hospitalization)
  Sender: FDA-Public Use
  Company Number: US-ASTRAZENECA-2020SE02652

PATIENT
  Sex: Female

DRUGS (16)
  1. CORTISONE [Concomitant]
     Active Substance: CORTISONE
     Indication: JOINT SWELLING
  2. FUROSEMIDE. [Concomitant]
     Active Substance: FUROSEMIDE
     Dosage: 40.0MG UNKNOWN
  3. TORSEMIDE. [Concomitant]
     Active Substance: TORSEMIDE
  4. ESCITALOPRAM [Concomitant]
     Active Substance: ESCITALOPRAM OXALATE
     Indication: NERVOUS SYSTEM DISORDER
  5. BYDUREON [Suspect]
     Active Substance: EXENATIDE
     Indication: TYPE 2 DIABETES MELLITUS
     Route: 058
  6. LOSARTAN. [Concomitant]
     Active Substance: LOSARTAN
     Indication: CARDIAC DISORDER
  7. SYMBICORT [Suspect]
     Active Substance: BUDESONIDE\FORMOTEROL FUMARATE DIHYDRATE
     Indication: CHRONIC OBSTRUCTIVE PULMONARY DISEASE
     Dosage: 160/4.5MCG 1 PUFF DAILY
     Route: 055
  8. NEXIUM 24HR [Suspect]
     Active Substance: ESOMEPRAZOLE MAGNESIUM
     Indication: GASTROOESOPHAGEAL REFLUX DISEASE
     Route: 048
  9. FUROSEMIDE. [Concomitant]
     Active Substance: FUROSEMIDE
     Dosage: 10.0MG UNKNOWN
  10. SYMBICORT [Suspect]
     Active Substance: BUDESONIDE\FORMOTEROL FUMARATE DIHYDRATE
     Indication: ASTHMA
     Dosage: 160/4.5MCG 1 PUFF DAILY
     Route: 055
  11. REQUIP [Concomitant]
     Active Substance: ROPINIROLE HYDROCHLORIDE
     Indication: RESTLESS LEGS SYNDROME
     Dosage: 15 MG TWO OR THREE TIMES DAILY
  12. ESCITALOPRAM [Concomitant]
     Active Substance: ESCITALOPRAM OXALATE
     Indication: DEPRESSION
  13. METFORMIN [Concomitant]
     Active Substance: METFORMIN HYDROCHLORIDE
  14. ATORVASTATIN [Concomitant]
     Active Substance: ATORVASTATIN
     Indication: BLOOD CHOLESTEROL ABNORMAL
  15. PREDNISONE. [Concomitant]
     Active Substance: PREDNISONE
     Indication: ASTHMA
  16. FUROSEMIDE. [Concomitant]
     Active Substance: FUROSEMIDE
     Dosage: 20.0MG UNKNOWN

REACTIONS (27)
  - Peripheral swelling [Unknown]
  - Injection site haemorrhage [Unknown]
  - Ischaemic skin ulcer [Recovered/Resolved]
  - Thyroid disorder [Unknown]
  - Diabetic neuropathy [Unknown]
  - Chronic obstructive pulmonary disease [Unknown]
  - Drug delivery system issue [Unknown]
  - Off label use [Unknown]
  - Weight decreased [Unknown]
  - Depression [Unknown]
  - Fluid retention [Unknown]
  - Asthma [Unknown]
  - Pneumonia [Unknown]
  - Injection site pain [Unknown]
  - Nasopharyngitis [Unknown]
  - Diabetes mellitus inadequate control [Unknown]
  - Joint swelling [Not Recovered/Not Resolved]
  - Poor peripheral circulation [Unknown]
  - Pollakiuria [Unknown]
  - Sinusitis [Recovering/Resolving]
  - Restless legs syndrome [Unknown]
  - Gastrooesophageal reflux disease [Unknown]
  - Cellulitis [Unknown]
  - Bronchitis [Unknown]
  - Upper respiratory tract infection [Recovering/Resolving]
  - Device issue [Unknown]
  - Product dose omission [Unknown]

NARRATIVE: CASE EVENT DATE: 2018
